FAERS Safety Report 12065510 (Version 1)
Quarter: 2016Q1

REPORT INFORMATION
  Report Type: Spontaneous
  Country: US (occurrence: US)
  Receive Date: 20160210
  Receipt Date: 20160210
  Transmission Date: 20160526
  Serious: Yes (Hospitalization, Other)
  Sender: FDA-Public Use
  Company Number: US-ALEXION PHARMACEUTICALS INC-A201600687

PATIENT
  Sex: Male

DRUGS (2)
  1. SOLIRIS [Suspect]
     Active Substance: ECULIZUMAB
     Indication: OFF LABEL USE
  2. SOLIRIS [Suspect]
     Active Substance: ECULIZUMAB
     Indication: MALIGNANT ATROPHIC PAPULOSIS
     Dosage: UNK
     Route: 042
     Dates: start: 201001

REACTIONS (9)
  - Pulmonary function test abnormal [Unknown]
  - Faeces soft [Unknown]
  - Dyspnoea [Unknown]
  - Pericardial effusion [Unknown]
  - Gallbladder disorder [Unknown]
  - Gastrointestinal oedema [Unknown]
  - Pleural effusion [Unknown]
  - Off label use [Unknown]
  - Oedema peripheral [Unknown]
